FAERS Safety Report 12683082 (Version 1)
Quarter: 2016Q3

REPORT INFORMATION
  Report Type: Spontaneous
  Country: US (occurrence: US)
  Receive Date: 20160825
  Receipt Date: 20160825
  Transmission Date: 20161109
  Serious: No
  Sender: FDA-Public Use
  Company Number: US-ASTRAZENECA-2016SE88643

PATIENT
  Sex: Male
  Weight: 80.7 kg

DRUGS (11)
  1. CAPLISUINE [Concomitant]
     Route: 048
  2. POLYETHYLENE [Concomitant]
     Active Substance: HIGH DENSITY POLYETHYLENE
     Indication: CONSTIPATION
     Route: 048
  3. HYDROLINE [Concomitant]
     Route: 048
  4. TYLENOL [Concomitant]
     Active Substance: ACETAMINOPHEN
     Route: 048
  5. PULMICORT FLEXHALER [Suspect]
     Active Substance: BUDESONIDE
     Indication: ASTHMA
     Dosage: 180 MCG 225 MG, 2 PUFFS TWICE DAILY
     Route: 055
     Dates: start: 2001
  6. RAMAPRIL [Concomitant]
     Route: 048
  7. FINASTERIDE. [Concomitant]
     Active Substance: FINASTERIDE
     Route: 048
  8. POLYCRYSTATIN [Concomitant]
     Route: 048
  9. EPANHIL [Concomitant]
     Indication: BLOOD PRESSURE ABNORMAL
     Route: 048
  10. ALBUTEROL. [Concomitant]
     Active Substance: ALBUTEROL
     Route: 055
  11. CLARITIN [Concomitant]
     Active Substance: LORATADINE
     Indication: SINUS DISORDER
     Route: 048

REACTIONS (4)
  - Arthritis [Not Recovered/Not Resolved]
  - Intentional product misuse [Unknown]
  - Product quality issue [Unknown]
  - Off label use [Unknown]
